FAERS Safety Report 18166575 (Version 1)
Quarter: 2020Q3

REPORT INFORMATION
  Report Type: Spontaneous
  Country: DE (occurrence: DE)
  Receive Date: 20200819
  Receipt Date: 20200819
  Transmission Date: 20201103
  Serious: Yes (Hospitalization)
  Sender: FDA-Public Use
  Company Number: DE-TEVA-2020-DE-1815585

PATIENT
  Age: 84 Year
  Sex: Female
  Weight: 80 kg

DRUGS (19)
  1. TOUJEO [Concomitant]
     Active Substance: INSULIN GLARGINE
     Dosage: 1 DOSAGE FORMS DAILY; 27 IE, 0?0?1?0
  2. MIRTAZAPIN [Suspect]
     Active Substance: MIRTAZAPINE
     Dosage: .5 DOSAGE FORMS DAILY; 15 MG, 0?0?0.5?0
  3. MOVICOL [Concomitant]
     Active Substance: POLYETHYLENE GLYCOL 3350\POTASSIUM CHLORIDE\SODIUM BICARBONATE\SODIUM CHLORIDE
     Dosage: 1 DOSAGE FORMS DAILY; 1?0?0?0
  4. NOVORAPID [Concomitant]
     Active Substance: INSULIN ASPART
     Dosage: BY VALUE
  5. FOSTER 100/6MIKROGRAMM [Concomitant]
     Dosage: 2 DOSAGE FORMS DAILY; 100|6 MCG, 1?0?1?0
  6. FEBUXOSTAT. [Suspect]
     Active Substance: FEBUXOSTAT
     Dosage: 80 MILLIGRAM DAILY;  0?1?0?0
  7. SPIRIVA [Concomitant]
     Active Substance: TIOTROPIUM BROMIDE MONOHYDRATE
     Dosage: 18 MICROGRAM DAILY; 1?0?0?0
  8. PANTOPRAZOL [Concomitant]
     Active Substance: PANTOPRAZOLE SODIUM
     Dosage: 20 MILLIGRAM DAILY; 1?0?0?0
  9. HYDROCHLOROTHIAZID [Suspect]
     Active Substance: HYDROCHLOROTHIAZIDE
     Dosage: 25 MILLIGRAM DAILY;  1?0?0?0
  10. TORASEMID [Concomitant]
     Active Substance: TORSEMIDE
     Dosage: 1 DOSAGE FORMS DAILY; 200 MG, 0.5?0?0.5?0
  11. ACETYLSALICYLSAURE [Concomitant]
     Active Substance: ASPIRIN
     Dosage: 100 MILLIGRAM DAILY;  0?1?0?0
  12. LEVOTHYROXIN?NATRIUM [Concomitant]
     Active Substance: LEVOTHYROXINE SODIUM
     Dosage: 100 MICROGRAM DAILY;  1?0?0?0
  13. APIXABAN [Concomitant]
     Active Substance: APIXABAN
     Dosage: 5 MILLIGRAM DAILY;  1?0?1?0
  14. KALIUM VERLA [Concomitant]
     Active Substance: POTASSIUM CITRATE
     Dosage: 2?0?1?0
  15. BISOPROLOL [Concomitant]
     Active Substance: BISOPROLOL
     Dosage: .5 DOSAGE FORMS DAILY; 5 MG, 0.5?0?0?0
  16. TILIDINE/NALOXONE [Concomitant]
     Active Substance: NALOXONE HYDROCHLORIDE\TILIDINE HYDROCHLORIDE
     Dosage: 2 DOSAGE FORMS DAILY; 4|50 MG, 1?0?1?0
  17. PREGABALIN. [Concomitant]
     Active Substance: PREGABALIN
     Dosage: 150 MILLIGRAM DAILY; 1?0?1?0
  18. TRULICITY [Suspect]
     Active Substance: DULAGLUTIDE
     Dosage: 0.75 MG, TUESDAYS
  19. SIMVASTATIN. [Concomitant]
     Active Substance: SIMVASTATIN
     Dosage: 20 MILLIGRAM DAILY;  0?0?0?1

REACTIONS (2)
  - Abdominal pain lower [Recovering/Resolving]
  - Abdominal pain [Recovering/Resolving]
